FAERS Safety Report 14122261 (Version 2)
Quarter: 2018Q1

REPORT INFORMATION
  Report Type: Spontaneous
  Country: US (occurrence: US)
  Receive Date: 20171024
  Receipt Date: 20180123
  Transmission Date: 20180508
  Serious: No
  Sender: FDA-Public Use
  Company Number: US-IMPAX LABORATORIES, INC-2017-IPXL-02432

PATIENT
  Age: 65 Year
  Sex: Male
  Weight: 93 kg

DRUGS (5)
  1. RYTARY [Suspect]
     Active Substance: CARBIDOPA\LEVODOPA
     Indication: PARKINSON^S DISEASE
     Dosage: 48.75/195 MG, 2 CAPSULES, 4 TIMES DAILY
     Route: 048
     Dates: start: 20170805, end: 20170811
  2. CARBIDOPA AND LEVODOPA [Concomitant]
     Active Substance: CARBIDOPA\LEVODOPA
     Indication: PARKINSON^S DISEASE
     Dosage: 2 PILLS IMMEDIATE RELEASE 25-100 MG EVERY DAY AND 1 PILL CONTROLLED RELEASE, 50/200 MG, 5-6 TIME/DAY
     Route: 065
     Dates: start: 20170807
  3. MIRAPEX [Concomitant]
     Active Substance: PRAMIPEXOLE DIHYDROCHLORIDE
     Indication: RESTLESS LEGS SYNDROME
     Dosage: UNK
     Route: 065
  4. RYTARY [Interacting]
     Active Substance: CARBIDOPA\LEVODOPA
     Dosage: UNK, 5 /DAY FOR 1 DAY
     Route: 048
  5. OMEPRAZOLE. [Concomitant]
     Active Substance: OMEPRAZOLE
     Indication: DYSPEPSIA
     Dosage: UNK
     Route: 065

REACTIONS (6)
  - Nausea [Recovered/Resolved]
  - Drug effect delayed [Unknown]
  - Drug interaction [Unknown]
  - Drug effect incomplete [Unknown]
  - Therapeutic response shortened [Unknown]
  - Dizziness [Recovered/Resolved]

NARRATIVE: CASE EVENT DATE: 201708
